FAERS Safety Report 4807476-6 (Version None)
Quarter: 2005Q4

REPORT INFORMATION
  Report Type: 
  Country: None (occurrence: None)
  Receive Date: 20051024
  Receipt Date: 20050711
  Transmission Date: 20060501
  Serious: Yes (Disabling, Other)
  Sender: FDA-Public Use
  Company Number: US-MERCK-0507USA01501

PATIENT
  Age: 52 Year
  Sex: Female
  Weight: 109 kg

DRUGS (9)
  1. VIOXX [Suspect]
     Indication: ARTHRALGIA
     Route: 048
     Dates: start: 20000801, end: 20041001
  2. GLUCOPHAGE [Concomitant]
     Route: 065
  3. PRILOSEC [Concomitant]
     Route: 065
  4. ASPIRIN [Concomitant]
     Route: 065
  5. GLYBURIDE [Concomitant]
     Route: 065
  6. ATENOLOL [Concomitant]
     Route: 065
  7. LANTUS [Concomitant]
     Route: 065
  8. HYDROCHLOROTHIAZIDE [Concomitant]
     Route: 065
  9. LISINOPRIL [Concomitant]
     Route: 065

REACTIONS (4)
  - ANXIETY [None]
  - BLINDNESS UNILATERAL [None]
  - DEPRESSION [None]
  - RETINAL ARTERY OCCLUSION [None]
